FAERS Safety Report 14899156 (Version 1)
Quarter: 2018Q2

REPORT INFORMATION
  Report Type: Report from Study
  Country: US (occurrence: US)
  Receive Date: 20180516
  Receipt Date: 20180516
  Transmission Date: 20180711
  Serious: Yes (Death, Hospitalization)
  Sender: FDA-Public Use
  Company Number: US-EXELIXIS-CABO-18013031

PATIENT
  Age: 61 Year
  Sex: Male

DRUGS (1)
  1. CABOMETYX [Suspect]
     Active Substance: CABOZANTINIB S-MALATE
     Indication: LUNG DISORDER
     Dosage: 60 MG, QD
     Route: 048
     Dates: start: 20180216

REACTIONS (4)
  - Pain [Unknown]
  - Death [Fatal]
  - Off label use [Unknown]
  - Dehydration [Unknown]

NARRATIVE: CASE EVENT DATE: 20180301
